FAERS Safety Report 14924575 (Version 1)
Quarter: 2018Q2

REPORT INFORMATION
  Report Type: Spontaneous
  Country: US (occurrence: US)
  Receive Date: 20180522
  Receipt Date: 20180522
  Transmission Date: 20180711
  Serious: Yes (Other)
  Sender: FDA-Public Use
  Company Number: US-ALLERGAN-1826886US

PATIENT
  Age: 80 Year
  Sex: Female

DRUGS (1)
  1. HYDROCHLOROTHIAZIDE UNK [Suspect]
     Active Substance: HYDROCHLOROTHIAZIDE
     Indication: HYPERTENSION
     Dosage: UNK, QD
     Route: 065

REACTIONS (3)
  - Arrhythmia [Unknown]
  - Sinoatrial block [Unknown]
  - Atrioventricular block second degree [Unknown]
